FAERS Safety Report 7157139-X (Version None)
Quarter: 2010Q4

REPORT INFORMATION
  Report Type: 
  Country: None (occurrence: None)
  Receive Date: 20101214
  Receipt Date: 20100104
  Transmission Date: 20110411
  Serious: No
  Sender: FDA-Public Use
  Company Number: US-ASTRAZENECA-2010SE00175

PATIENT
  Age: 75 Year
  Sex: Female
  Weight: 63.5 kg

DRUGS (4)
  1. CRESTOR [Suspect]
     Indication: BLOOD CHOLESTEROL INCREASED
     Route: 048
     Dates: start: 20091129
  2. AMLODIPINE [Concomitant]
  3. BYSTOLIC [Concomitant]
  4. COENZYME Q10 [Concomitant]

REACTIONS (3)
  - AMNESIA [None]
  - NIGHT SWEATS [None]
  - PRURITUS [None]
